FAERS Safety Report 20222889 (Version 2)
Quarter: 2022Q2

REPORT INFORMATION
  Report Type: Spontaneous
  Country: US (occurrence: US)
  Receive Date: 20211223
  Receipt Date: 20220421
  Transmission Date: 20220721
  Serious: No
  Sender: FDA-Public Use
  Company Number: US-AMGEN-USASP2021203588

PATIENT
  Age: 72 Year
  Sex: Male

DRUGS (2)
  1. OTEZLA [Suspect]
     Active Substance: APREMILAST
     Indication: Psoriasis
     Dosage: 30 MILLIGRAM, BID
     Route: 048
     Dates: start: 20211001
  2. CORTISONE [Concomitant]
     Active Substance: CORTISONE
     Dosage: 1 PERCENT

REACTIONS (4)
  - Diarrhoea [Not Recovered/Not Resolved]
  - Product dose omission issue [Recovered/Resolved]
  - Seasonal allergy [Recovered/Resolved]
  - Psoriasis [Recovered/Resolved]

NARRATIVE: CASE EVENT DATE: 20210101
